FAERS Safety Report 17008984 (Version 2)
Quarter: 2019Q4

REPORT INFORMATION
  Report Type: Spontaneous
  Country: US (occurrence: US)
  Receive Date: 20191108
  Receipt Date: 20191120
  Transmission Date: 20200122
  Serious: No
  Sender: FDA-Public Use
  Company Number: US-JNJFOC-20191045178

PATIENT
  Age: 77 Year
  Sex: Female

DRUGS (2)
  1. XARELTO [Suspect]
     Active Substance: RIVAROXABAN
     Indication: PRODUCT USED FOR UNKNOWN INDICATION
     Dosage: BAR CODE NUMBER: 50458-579-30
     Route: 048
  2. PROPOFOL. [Concomitant]
     Active Substance: PROPOFOL
     Indication: FOOT OPERATION

REACTIONS (3)
  - Hot flush [Unknown]
  - Hypertension [Unknown]
  - Dyspnoea [Unknown]
